FAERS Safety Report 8763982 (Version 1)
Quarter: 2012Q4

REPORT INFORMATION
  Report Type: 
  Country: JP (occurrence: JP)
  Receive Date: 20120831
  Receipt Date: 20120831
  Transmission Date: 20130627
  Serious: Yes (Other)
  Sender: FDA-Public Use
  Company Number: JP-PFIZER INC-2012214119

PATIENT
  Age: 80 Year
  Sex: Female

DRUGS (5)
  1. AMLODIN [Suspect]
     Dosage: UNK
  2. LOSARTAN POTASSIUM [Suspect]
     Dosage: UNK
  3. AMPHOTERICIN B [Suspect]
     Dosage: UNK
  4. ITRACONAZOLE [Suspect]
     Dosage: UNK
  5. VALSARTAN [Suspect]
     Dosage: UNK

REACTIONS (1)
  - Hepatitis B [Unknown]
